FAERS Safety Report 19441397 (Version 1)
Quarter: 2021Q2

REPORT INFORMATION
  Report Type: Spontaneous
  Country: US (occurrence: US)
  Receive Date: 20210618
  Receipt Date: 20210618
  Transmission Date: 20210717
  Serious: Yes (Hospitalization)
  Sender: FDA-Public Use
  Company Number: None

PATIENT
  Sex: Male
  Weight: 73.13 kg

DRUGS (2)
  1. CAPECITABINE. [Suspect]
     Active Substance: CAPECITABINE
     Indication: APPENDIX CANCER
     Dosage: ?          OTHER FREQUENCY:BID 14DAYSON/7OFF;?
     Route: 048
     Dates: start: 20210407
  2. CAPECITABINE. [Suspect]
     Active Substance: CAPECITABINE
     Indication: APPENDIX CANCER
     Dosage: ?          OTHER FREQUENCY:BID X14DAYS 7 OFF;?
     Route: 048
     Dates: start: 20210407

REACTIONS (1)
  - Diarrhoea [None]
